FAERS Safety Report 7795772-2 (Version None)
Quarter: 2011Q4

REPORT INFORMATION
  Report Type: 
  Country: None (occurrence: None)
  Receive Date: 20111004
  Receipt Date: 20110923
  Transmission Date: 20120403
  Serious: Yes (Hospitalization)
  Sender: FDA-Public Use
  Company Number: US-BAXTER-2011BH030037

PATIENT
  Sex: Male

DRUGS (1)
  1. DIANEAL [Suspect]
     Indication: PERITONEAL DIALYSIS
     Route: 033

REACTIONS (8)
  - HYPOTENSION [None]
  - HYPOPHAGIA [None]
  - BLOOD POTASSIUM DECREASED [None]
  - MENTAL STATUS CHANGES [None]
  - URINARY TRACT INFECTION [None]
  - ORAL CANDIDIASIS [None]
  - DEHYDRATION [None]
  - PAIN [None]
